FAERS Safety Report 4373872-7 (Version None)
Quarter: 2004Q2

REPORT INFORMATION
  Report Type: 
  Country: None (occurrence: None)
  Receive Date: 20040609
  Receipt Date: 20040528
  Transmission Date: 20050107
  Serious: Yes (Hospitalization)
  Sender: FDA-Public Use
  Company Number: US-JNJFOC-20040400366

PATIENT
  Sex: Male
  Weight: 94.35 kg

DRUGS (14)
  1. REMICADE [Suspect]
     Route: 042
     Dates: start: 20040325
  2. REMICADE [Suspect]
     Indication: RHEUMATOID ARTHRITIS
     Dosage: 11TH INFUSION
     Route: 042
     Dates: start: 20040325
  3. METHOTREXATE [Concomitant]
     Indication: RHEUMATOID ARTHRITIS
     Route: 049
  4. VIOXX [Concomitant]
     Indication: RHEUMATOID ARTHRITIS
     Route: 049
  5. FOLIC ACID [Concomitant]
     Indication: RHEUMATOID ARTHRITIS
     Route: 042
  6. ALLOPURINOL [Concomitant]
     Indication: GOUT
     Route: 049
  7. MULTI-VITAMINS [Concomitant]
  8. MULTI-VITAMINS [Concomitant]
  9. MULTI-VITAMINS [Concomitant]
  10. MULTI-VITAMINS [Concomitant]
  11. MULTI-VITAMINS [Concomitant]
  12. MULTI-VITAMINS [Concomitant]
  13. MULTI-VITAMINS [Concomitant]
  14. MULTI-VITAMINS [Concomitant]

REACTIONS (3)
  - ACUTE MYOCARDIAL INFARCTION [None]
  - CORONARY ARTERY OCCLUSION [None]
  - VENTRICULAR HYPOKINESIA [None]
